FAERS Safety Report 8471616-0 (Version None)
Quarter: 2012Q2

REPORT INFORMATION
  Report Type: 
  Country: None (occurrence: None)
  Receive Date: 20120323
  Receipt Date: 20111206
  Transmission Date: 20120825
  Serious: Yes (Death)
  Sender: FDA-Public Use
  Company Number: 163-21880-11110631

PATIENT
  Age: 65 Year
  Sex: Male
  Weight: 172.3669 kg

DRUGS (10)
  1. PROTONIX [Concomitant]
  2. LOVENOX [Concomitant]
  3. DEXAMETHASONE [Concomitant]
  4. VELCADE [Concomitant]
  5. COUMADIN [Concomitant]
  6. TORSEMIDE [Concomitant]
  7. VALACYCLOVIR (VALACICLOVIR HYDROCHLORIDE) [Concomitant]
  8. TAMSULOSIN ER (TAMSULOSIN) [Concomitant]
  9. MORPHINE [Concomitant]
  10. LENALIDOMIDE [Suspect]
     Indication: MULTIPLE MYELOMA
     Dosage: 15 MG, DAILY, PO
     Route: 048
     Dates: start: 20111005, end: 20111017

REACTIONS (1)
  - PNEUMONIA [None]
